FAERS Safety Report 7688007-2 (Version None)
Quarter: 2011Q3

REPORT INFORMATION
  Report Type: 
  Country: None (occurrence: None)
  Receive Date: 20110817
  Receipt Date: 20110811
  Transmission Date: 20111222
  Serious: No
  Sender: FDA-Public Use
  Company Number: US-PFIZER INC-2011185250

PATIENT
  Sex: Female

DRUGS (1)
  1. NIFEDIPINE [Suspect]
     Dosage: 60 MG, 1X/DAY
     Route: 048
     Dates: start: 20110501

REACTIONS (2)
  - MEDICATION RESIDUE [None]
  - PRODUCT LABEL ISSUE [None]
